FAERS Safety Report 6640127-7 (Version None)
Quarter: 2010Q1

REPORT INFORMATION
  Report Type: 
  Country: None (occurrence: None)
  Receive Date: 20100318
  Receipt Date: 20100308
  Transmission Date: 20100710
  Serious: Yes (Other)
  Sender: FDA-Public Use
  Company Number: JP-ROCHE-685671

PATIENT
  Age: 64 Year
  Sex: Male

DRUGS (5)
  1. AVASTIN [Suspect]
     Indication: RECTAL CANCER METASTATIC
     Route: 041
     Dates: start: 20071001, end: 20090101
  2. FLUOROURACIL [Concomitant]
     Route: 040
     Dates: start: 20071001, end: 20090101
  3. FLUOROURACIL [Concomitant]
     Route: 041
     Dates: start: 20071001, end: 20090101
  4. LEVOFOLINATE [Concomitant]
     Route: 041
     Dates: start: 20071001, end: 20090101
  5. ELPLAT [Concomitant]
     Route: 041
     Dates: start: 20071001, end: 20090101

REACTIONS (1)
  - DYSCHEZIA [None]
